FAERS Safety Report 4789037-0 (Version None)
Quarter: 2005Q4

REPORT INFORMATION
  Report Type: 
  Country: None (occurrence: None)
  Receive Date: 20051004
  Receipt Date: 20050919
  Transmission Date: 20060501
  Serious: Yes (Death, Other)
  Sender: FDA-Public Use
  Company Number: 20698

PATIENT
  Age: 78 Year
  Sex: Female

DRUGS (3)
  1. KETOROLAC TROMETHAMINE [Suspect]
     Indication: HIP ARTHROPLASTY
     Dosage: IV
     Dates: start: 20030101
  2. KETOROLAC TROMETHAMINE [Suspect]
     Indication: PROCEDURAL PAIN
     Dosage: IV
     Dates: start: 20030101
  3. HEPARIN [Concomitant]

REACTIONS (2)
  - HAEMORRHAGE [None]
  - RENAL FAILURE [None]
